FAERS Safety Report 6187482-2 (Version None)
Quarter: 2009Q2

REPORT INFORMATION
  Report Type: 
  Country: None (occurrence: None)
  Receive Date: 20090512
  Receipt Date: 20090427
  Transmission Date: 20091009
  Serious: Yes (Other)
  Sender: FDA-Public Use
  Company Number: US-ROCHE-629983

PATIENT
  Age: 30 Year
  Sex: Male

DRUGS (2)
  1. DACLIZUMAB [Suspect]
     Indication: MULTIPLE SCLEROSIS
     Route: 042
  2. BETASERON [Suspect]
     Indication: MULTIPLE SCLEROSIS
     Route: 065

REACTIONS (8)
  - AUTOANTIBODY POSITIVE [None]
  - BLOOD BILIRUBIN INCREASED [None]
  - DRUG WITHDRAWAL SYNDROME [None]
  - LYMPHOPENIA [None]
  - MOUTH ULCERATION [None]
  - PERSISTENT GENERALISED LYMPHADENOPATHY [None]
  - PHOTOSENSITIVITY REACTION [None]
  - PITUITARY HAEMORRHAGE [None]
